FAERS Safety Report 6775086-X (Version None)
Quarter: 2010Q2

REPORT INFORMATION
  Report Type: 
  Country: None (occurrence: None)
  Receive Date: 20100617
  Receipt Date: 20100607
  Transmission Date: 20101027
  Serious: Yes (Other)
  Sender: FDA-Public Use
  Company Number: B0660067A

PATIENT
  Age: 43 Year
  Sex: Female

DRUGS (3)
  1. PAROXETINE HCL [Suspect]
     Indication: OBSESSIVE-COMPULSIVE DISORDER
     Dosage: 50MG PER DAY
     Route: 048
  2. FLUVOXAMINE MALEATE [Concomitant]
     Indication: OBSESSIVE-COMPULSIVE DISORDER
     Route: 048
  3. LITHIUM CARBONATE CAP [Concomitant]
     Indication: OBSESSIVE-COMPULSIVE DISORDER
     Dosage: 1200MG PER DAY
     Route: 048

REACTIONS (4)
  - ELEVATED MOOD [None]
  - HYPERKINESIA [None]
  - LOGORRHOEA [None]
  - MANIA [None]
